FAERS Safety Report 22812186 (Version 3)
Quarter: 2023Q4

REPORT INFORMATION
  Report Type: Spontaneous
  Country: US (occurrence: US)
  Receive Date: 20230811
  Receipt Date: 20231221
  Transmission Date: 20240109
  Serious: No
  Sender: FDA-Public Use
  Company Number: US-Ipsen Biopharmaceuticals, Inc.-2023-18914

PATIENT
  Age: 76 Year
  Sex: Male
  Weight: 90.71 kg

DRUGS (9)
  1. SOMATULINE DEPOT [Suspect]
     Active Substance: LANREOTIDE ACETATE
     Indication: Acromegaly
     Dosage: 90 MG, ONCE A MONTH
     Route: 058
     Dates: start: 2008
  2. SOMAVERT [Concomitant]
     Active Substance: PEGVISOMANT
  3. TAMSULOSIN [Concomitant]
     Active Substance: TAMSULOSIN
  4. VITAMIN D2 [Concomitant]
     Active Substance: ERGOCALCIFEROL
  5. VALSARTAN [Concomitant]
     Active Substance: VALSARTAN
  6. ROSUVASTATIN [Concomitant]
     Active Substance: ROSUVASTATIN
  7. CALCIUM [Concomitant]
     Active Substance: CALCIUM
  8. VITAMIN B12 [Concomitant]
     Active Substance: CYANOCOBALAMIN
  9. EZETIMIBE [Concomitant]
     Active Substance: EZETIMIBE

REACTIONS (3)
  - Arthralgia [Recovering/Resolving]
  - Tremor [Recovering/Resolving]
  - Gait disturbance [Unknown]
